FAERS Safety Report 4875086-0 (Version None)
Quarter: 2006Q1

REPORT INFORMATION
  Report Type: 
  Country: None (occurrence: None)
  Receive Date: 20060109
  Receipt Date: 20060104
  Transmission Date: 20060701
  Serious: Yes (Hospitalization)
  Sender: FDA-Public Use
  Company Number: US-GLAXOSMITHKLINE-A0587730A

PATIENT
  Age: 43 Year
  Sex: Female

DRUGS (8)
  1. LAMICTAL [Suspect]
     Indication: DIABETIC NEUROPATHY
     Dates: start: 20040101, end: 20040101
  2. PAXIL [Suspect]
     Indication: DEPRESSION
     Route: 048
     Dates: start: 20030101, end: 20030101
  3. HYDROXYZINE [Concomitant]
  4. NEURONTIN [Concomitant]
  5. AMBIEN [Concomitant]
  6. SINGULAIR [Concomitant]
  7. ALBUTEROL [Concomitant]
  8. INSULIN [Concomitant]

REACTIONS (8)
  - ANAPHYLACTIC REACTION [None]
  - BRONCHIAL OEDEMA [None]
  - COMA [None]
  - DEPRESSION [None]
  - INSOMNIA [None]
  - RASH [None]
  - SUICIDAL IDEATION [None]
  - SWELLING FACE [None]
